FAERS Safety Report 25698606 (Version 1)
Quarter: 2025Q3

REPORT INFORMATION
  Report Type: Report from Study
  Country: US (occurrence: US)
  Receive Date: 20250819
  Receipt Date: 20250819
  Transmission Date: 20251020
  Serious: Yes (Hospitalization, Other)
  Sender: ALEXION PHARMACEUTICALS
  Company Number: US-ASTRAZENECA-202508USA011618US

PATIENT
  Age: 1 Year
  Sex: Male

DRUGS (1)
  1. STRENSIQ [Suspect]
     Active Substance: ASFOTASE ALFA
     Indication: Phosphorus metabolism disorder
     Dosage: 20 MILLIGRAM, TIW
     Route: 065

REACTIONS (3)
  - Haematemesis [Unknown]
  - Hungry bone syndrome [Unknown]
  - Hypercalcaemia [Unknown]
